FAERS Safety Report 24384467 (Version 1)
Quarter: 2024Q3

REPORT INFORMATION
  Report Type: Spontaneous
  Country: US (occurrence: None)
  Receive Date: 20240929
  Receipt Date: 20240929
  Transmission Date: 20241016
  Serious: Yes (Other)
  Sender: Public
  Company Number: None

PATIENT
  Age: 56 Year
  Sex: Female
  Weight: 81.65 kg

DRUGS (4)
  1. ELIQUIS [Suspect]
     Active Substance: APIXABAN
  2. SINGULAIR [Concomitant]
     Active Substance: MONTELUKAST SODIUM
  3. ATORVASTATIN [Concomitant]
     Active Substance: ATORVASTATIN
  4. trelergy [Concomitant]

REACTIONS (3)
  - Vaginal haemorrhage [None]
  - Cervix haemorrhage uterine [None]
  - Therapy cessation [None]

NARRATIVE: CASE EVENT DATE: 20240911
